FAERS Safety Report 13024381 (Version 5)
Quarter: 2017Q4

REPORT INFORMATION
  Report Type: Report from Study
  Country: US (occurrence: US)
  Receive Date: 20161213
  Receipt Date: 20171221
  Transmission Date: 20180320
  Serious: Yes (Hospitalization)
  Sender: FDA-Public Use
  Company Number: US-ACTELION-A-NJ2016-145397

PATIENT
  Age: 64 Year
  Sex: Female
  Weight: 52.61 kg

DRUGS (3)
  1. AMLODIPINE [Concomitant]
     Active Substance: AMLODIPINE BESYLATE
  2. SILDENAFIL CITRATE. [Concomitant]
     Active Substance: SILDENAFIL CITRATE
     Dosage: 40 MG, TID
  3. OPSUMIT [Suspect]
     Active Substance: MACITENTAN
     Indication: PULMONARY ARTERIAL HYPERTENSION
     Dosage: 10 MG, QD
     Route: 048
     Dates: start: 20150212

REACTIONS (10)
  - Dyspnoea exertional [Unknown]
  - Acute respiratory failure [Unknown]
  - Nasopharyngitis [Unknown]
  - Cough [Unknown]
  - Inflammation [Unknown]
  - Dyspnoea [Unknown]
  - Bronchitis [Unknown]
  - Pleurisy [Unknown]
  - Pneumonia [Unknown]
  - Chest discomfort [Unknown]
